FAERS Safety Report 24208306 (Version 1)
Quarter: 2024Q3

REPORT INFORMATION
  Report Type: Spontaneous
  Country: FR (occurrence: FR)
  Receive Date: 20240814
  Receipt Date: 20240814
  Transmission Date: 20241016
  Serious: Yes (Hospitalization, Other)
  Sender: AUROBINDO
  Company Number: FR-AFSSAPS-CF2024000243

PATIENT
  Age: 73 Year
  Sex: Male

DRUGS (2)
  1. INDAPAMIDE [Suspect]
     Active Substance: INDAPAMIDE
     Indication: Hypertension
     Dosage: 1 DOSAGE FORM
     Route: 065
     Dates: start: 20230227, end: 20230504
  2. DUPILUMAB [Suspect]
     Active Substance: DUPILUMAB
     Indication: Dermatitis atopic
     Dosage: 1 DOSAGE FORM (2 SIMULTANEOUS INJECTIONS AT S0 (I.E. 600MG) THEN 1 INJECTION EVERY 2 WEEKS) (DUPIXEN
     Route: 058
     Dates: start: 20221011, end: 20230504

REACTIONS (2)
  - Autoimmune hepatitis [Recovering/Resolving]
  - Liver disorder [Recovering/Resolving]

NARRATIVE: CASE EVENT DATE: 20230427
